APPROVED DRUG PRODUCT: CHLORPROMAZINE HYDROCHLORIDE
Active Ingredient: CHLORPROMAZINE HYDROCHLORIDE
Strength: 100MG/ML
Dosage Form/Route: CONCENTRATE;ORAL
Application: A216678 | Product #002 | TE Code: AB
Applicant: RUBICON RESEARCH PRIVATE LTD
Approved: Oct 10, 2025 | RLD: No | RS: No | Type: RX